FAERS Safety Report 8250970-9 (Version None)
Quarter: 2012Q1

REPORT INFORMATION
  Report Type: 
  Country: None (occurrence: None)
  Receive Date: 20120319
  Receipt Date: 20090706
  Transmission Date: 20120608
  Serious: Yes (Hospitalization, Other)
  Sender: FDA-Public Use
  Company Number: PHEH2009US06513

PATIENT
  Age: 74 Year
  Sex: Female
  Weight: 106.1 kg

DRUGS (12)
  1. CRESTOR [Concomitant]
  2. GLIPIZIDE [Concomitant]
  3. MOBIC [Concomitant]
  4. KLOR-CON [Concomitant]
  5. VICODIN [Concomitant]
  6. SYNTHROID [Concomitant]
  7. TEKTURNA [Suspect]
     Indication: HYPERTENSION
     Dosage: 150 MG, QD
     Dates: start: 20081004, end: 20090602
  8. JANUVIA [Concomitant]
  9. CELEBREX [Concomitant]
  10. AZOR (ALPRAZOLAM) (ALPRAZOLAM) [Concomitant]
  11. LEXAPRO [Concomitant]
  12. METFORMIN HCL [Concomitant]

REACTIONS (4)
  - GENERALISED OEDEMA [None]
  - BLOOD UREA INCREASED [None]
  - BRAIN NATRIURETIC PEPTIDE INCREASED [None]
  - OEDEMA [None]
